FAERS Safety Report 6856070-4 (Version None)
Quarter: 2010Q3

REPORT INFORMATION
  Report Type: 
  Country: None (occurrence: None)
  Receive Date: 20100719
  Receipt Date: 20100709
  Transmission Date: 20110219
  Serious: Yes (Hospitalization)
  Sender: FDA-Public Use
  Company Number: US-JNJFOC-20100404847

PATIENT
  Sex: Male
  Weight: 149.69 kg

DRUGS (10)
  1. SANDOZ FENTANYL TRANSDERMAL SYSTEM [Suspect]
     Indication: BACK PAIN
     Route: 062
  2. SANDOZ FENTANYL TRANSDERMAL SYSTEM [Suspect]
     Route: 062
  3. LORCET-HD [Concomitant]
     Indication: BREAKTHROUGH PAIN
     Dosage: 10/650 MG EVERY 4-6 HOURS
     Route: 048
  4. BUMEX [Concomitant]
     Indication: BLOOD PRESSURE
     Route: 048
  5. BUMEX [Concomitant]
     Indication: DIURETIC THERAPY
     Route: 048
  6. EFFEXOR XR [Concomitant]
     Indication: DEPRESSION
     Route: 048
  7. ATIVAN [Concomitant]
     Indication: ANXIETY
     Route: 048
  8. KLOR-CON [Concomitant]
     Indication: HYPOKALAEMIA
     Route: 048
  9. HYDROXYZINE HCL [Concomitant]
     Indication: PRURITUS
     Route: 048
  10. BACLOFEN [Concomitant]
     Indication: PAIN IN EXTREMITY
     Route: 048

REACTIONS (5)
  - DRUG INEFFECTIVE [None]
  - INTERVERTEBRAL DISC OPERATION [None]
  - OEDEMA PERIPHERAL [None]
  - ROAD TRAFFIC ACCIDENT [None]
  - SPINAL FUSION SURGERY [None]
